FAERS Safety Report 5361814-7 (Version None)
Quarter: 2007Q2

REPORT INFORMATION
  Report Type: 
  Country: None (occurrence: None)
  Receive Date: 20070619
  Receipt Date: 20070605
  Transmission Date: 20071010
  Serious: Yes (Other)
  Sender: FDA-Public Use
  Company Number: US-ELI_LILLY_AND_COMPANY-US200706001051

PATIENT
  Age: 69 Year
  Sex: Female

DRUGS (5)
  1. STRATTERA [Suspect]
     Indication: DISTURBANCE IN ATTENTION
     Dosage: 40 MG, DAILY (1/D)
     Route: 048
     Dates: start: 20050101
  2. MULTIVITAMIN [Concomitant]
  3. OMEGA 3 [Concomitant]
  4. CALCIUM CHLORIDE [Concomitant]
  5. DIAZEPAM [Concomitant]
     Dosage: UNK, AS NEEDED

REACTIONS (2)
  - DRUG INEFFECTIVE [None]
  - SURGERY [None]
